FAERS Safety Report 5583200-7 (Version None)
Quarter: 2007Q4

REPORT INFORMATION
  Report Type: 
  Country: None (occurrence: None)
  Receive Date: 20071130
  Receipt Date: 20061127
  Transmission Date: 20080405
  Serious: Yes (Other)
  Sender: FDA-Public Use
  Company Number: WAES 0611USA06805

PATIENT
  Age: 41 Year
  Sex: Female
  Weight: 99.3377 kg

DRUGS (26)
  1. FOSAMAX [Suspect]
     Dosage: 5 MG/DAILY/PO
     Route: 048
     Dates: start: 20020101, end: 20030701
  2. FOSAMAX [Suspect]
     Dosage: 10 MG/DAILY/PO
     Route: 048
     Dates: start: 20030701, end: 20051015
  3. FOSAMAX [Suspect]
     Dosage: 70 MG/WKY/PO
     Route: 048
     Dates: start: 20051015
  4. AVANDIA [Concomitant]
  5. BUSPAR [Concomitant]
  6. CELEXA [Concomitant]
  7. COZAAR [Concomitant]
  8. FLOVENT [Concomitant]
  9. GLUCOPHAGE [Concomitant]
  10. MURINE [Concomitant]
  11. NORVASC [Concomitant]
  12. PENLAC [Concomitant]
  13. PLAQUENIL [Concomitant]
  14. PREVACID [Concomitant]
  15. RISPERDAL [Concomitant]
  16. ALBUTEROL [Concomitant]
  17. ASPIRIN [Concomitant]
  18. AZATHIOPRINE [Concomitant]
  19. CALCIUM (UNSPECIFIED) [Concomitant]
  20. ECONAZOLE NITRATE [Concomitant]
  21. FLUCONAZOLE [Concomitant]
  22. FOLIC ACID [Concomitant]
  23. GLYBURIDE [Concomitant]
  24. IRON (UNSPECIFIED) [Concomitant]
  25. PREDNISONE TAB [Concomitant]
  26. VITAMINS (UNSPECIFIED) [Concomitant]

REACTIONS (17)
  - ANXIETY [None]
  - BACK PAIN [None]
  - DEPRESSION [None]
  - DIZZINESS [None]
  - FACIAL PAIN [None]
  - FUNGAL INFECTION [None]
  - INSOMNIA [None]
  - JOINT INSTABILITY [None]
  - LYMPHADENOPATHY [None]
  - MUSCULAR WEAKNESS [None]
  - OSTEONECROSIS [None]
  - PAIN IN JAW [None]
  - PSYCHOTIC DISORDER [None]
  - RHEUMATOID ARTHRITIS [None]
  - SKIN ULCER [None]
  - TYPE 2 DIABETES MELLITUS [None]
  - VISION BLURRED [None]
